FAERS Safety Report 8920719 (Version 2)
Quarter: 2013Q1

REPORT INFORMATION
  Report Type: Report from Study
  Country: JP (occurrence: JP)
  Receive Date: 20121122
  Receipt Date: 20130117
  Transmission Date: 20140127
  Serious: Yes (Hospitalization, Other)
  Sender: FDA-Public Use
  Company Number: JP-009507513-2012SP010343

PATIENT
  Age: 66 Year
  Sex: Male
  Weight: 62 kg

DRUGS (16)
  1. PEGINTRON [Suspect]
     Indication: CHRONIC HEPATITIS C
     Dosage: 1.5 MICROGRAM PER KILOGRAM, QW
     Route: 058
     Dates: start: 20120111, end: 20120620
  2. REBETOL [Suspect]
     Indication: CHRONIC HEPATITIS C
     Dosage: 800 MG, QD
     Route: 048
     Dates: start: 20120111, end: 20120131
  3. REBETOL [Suspect]
     Dosage: 400 MG, QD
     Route: 048
     Dates: start: 20120201, end: 20120214
  4. REBETOL [Suspect]
     Dosage: 200 MG, QD
     Route: 048
     Dates: start: 20120215, end: 20120508
  5. REBETOL [Suspect]
     Dosage: 400MG,QD
     Route: 048
     Dates: start: 20120509, end: 20120515
  6. REBETOL [Suspect]
     Dosage: 600 MG, QD
     Route: 048
     Dates: start: 20120516, end: 20120626
  7. TELAVIC [Suspect]
     Indication: HEPATITIS C
     Dosage: 2250 MG, QD
     Route: 048
     Dates: start: 20120111, end: 20120214
  8. TELAVIC [Suspect]
     Dosage: 1500 MG, QD, CUMULATIVE DOSE: 6750 MG
     Route: 048
     Dates: start: 20120215, end: 20120403
  9. CELECOXIB [Concomitant]
     Indication: BACK PAIN
     Dosage: FORMULATION POR (DETAILS UNSPECIFIED)
     Route: 048
  10. GASTROM [Concomitant]
     Indication: GASTRITIS
     Dosage: 3 G, QD
     Route: 048
  11. SEIBULE [Concomitant]
     Indication: DIABETES MELLITUS
     Dosage: 150 MG, QD
     Route: 048
  12. OMEPRAL [Concomitant]
     Indication: GASTROOESOPHAGEAL REFLUX DISEASE
     Dosage: 10 MG, QD
     Route: 048
  13. LASIX (FUROSEMIDE) [Concomitant]
     Indication: OEDEMA
     Dosage: 20 MG, QD
     Route: 048
  14. MAGMITT [Concomitant]
     Indication: CONSTIPATION
     Dosage: 660 MG, QD
     Route: 048
  15. JUZEN-TAIHO-TO [Concomitant]
     Indication: ASTHENIA
     Dosage: 7.5 G, QD
     Route: 048
  16. KERATINAMIN [Concomitant]
     Indication: DRY SKIN
     Dosage: UNK UNK, UNKNOWN
     Route: 065

REACTIONS (3)
  - Prostatitis [Recovered/Resolved]
  - Anaemia [Recovered/Resolved]
  - Haemoglobin decreased [Recovered/Resolved]
